FAERS Safety Report 23393465 (Version 1)
Quarter: 2024Q1

REPORT INFORMATION
  Report Type: Spontaneous
  Country: CN (occurrence: CN)
  Receive Date: 20240111
  Receipt Date: 20240111
  Transmission Date: 20240410
  Serious: Yes (Disabling, Other)
  Sender: FDA-Public Use
  Company Number: CN-PFIZER INC-PV202400002076

PATIENT
  Age: 76 Year
  Sex: Male

DRUGS (4)
  1. EPIRUBICIN HYDROCHLORIDE [Suspect]
     Active Substance: EPIRUBICIN HYDROCHLORIDE
     Indication: Diffuse large B-cell lymphoma
     Dosage: 60 MG, 1X/DAY
     Route: 041
     Dates: start: 20231206, end: 20231206
  2. CYCLOPHOSPHAMIDE [Suspect]
     Active Substance: CYCLOPHOSPHAMIDE
     Indication: Diffuse large B-cell lymphoma
     Dosage: 0.7 G, 1X/DAY
     Route: 041
     Dates: start: 20231206, end: 20231206
  3. VINDESINE SULFATE [Suspect]
     Active Substance: VINDESINE SULFATE
     Indication: Diffuse large B-cell lymphoma
     Dosage: 4 MG, 1X/DAY
     Route: 041
     Dates: start: 20231206, end: 20231206
  4. RITUXIMAB [Concomitant]
     Active Substance: RITUXIMAB
     Indication: Diffuse large B-cell lymphoma
     Dosage: 600 MG
     Route: 041
     Dates: start: 20231205, end: 20231205

REACTIONS (10)
  - Myelosuppression [Recovering/Resolving]
  - Hepatic cirrhosis [Unknown]
  - Arrhythmia [Unknown]
  - Leukoplakia oral [Unknown]
  - Pollakiuria [Unknown]
  - Pyrexia [Unknown]
  - Temperature intolerance [Unknown]
  - Splenomegaly [Unknown]
  - Benign prostatic hyperplasia [Unknown]
  - Urinary tract infection [Unknown]

NARRATIVE: CASE EVENT DATE: 20231211
